FAERS Safety Report 25618724 (Version 1)
Quarter: 2025Q3

REPORT INFORMATION
  Report Type: Spontaneous
  Country: US (occurrence: None)
  Receive Date: 20250729
  Receipt Date: 20250729
  Transmission Date: 20251020
  Serious: No
  Sender: FDA-CTU
  Company Number: None

PATIENT
  Age: 54 Year
  Sex: Female

DRUGS (1)
  1. VENLAFAXINE [Suspect]
     Active Substance: VENLAFAXINE HYDROCHLORIDE
     Indication: Depression

REACTIONS (9)
  - Sexual dysfunction [None]
  - Restless legs syndrome [None]
  - Therapy interrupted [None]
  - Agitation [None]
  - Anxiety [None]
  - Compulsions [None]
  - Intentional self-injury [None]
  - Skin laceration [None]
  - Drug withdrawal syndrome [None]
